FAERS Safety Report 5676965-7 (Version None)
Quarter: 2008Q1

REPORT INFORMATION
  Report Type: 
  Country: None (occurrence: None)
  Receive Date: 20080318
  Receipt Date: 20080306
  Transmission Date: 20080703
  Serious: Yes (Other)
  Sender: FDA-Public Use
  Company Number: 2008S1001626

PATIENT
  Age: 9 Year
  Sex: Male
  Weight: 29 kg

DRUGS (2)
  1. FLEET CHILDRENS ENEMA (SODIUM PHOSPHATE) [Suspect]
     Indication: LAXATIVE SUPPORTIVE CARE
     Dosage: 66 MG;X1;RTL
     Route: 054
     Dates: start: 20080303, end: 20080303
  2. MIRALAX [Concomitant]

REACTIONS (2)
  - BURNING SENSATION [None]
  - PAIN [None]
